FAERS Safety Report 9670331 (Version 1)
Quarter: 2013Q4

REPORT INFORMATION
  Report Type: Spontaneous
  Country: NG (occurrence: None)
  Receive Date: 20131104
  Receipt Date: 20131104
  Transmission Date: 20140711
  Serious: Yes (Death, Congenital Anomaly, Other)
  Sender: FDA-Public Use
  Company Number: AUR-APL-2013-09225

PATIENT
  Sex: Male
  Weight: 2.8 kg

DRUGS (2)
  1. NEVIRAPINE (NEVIRAPINE) [Suspect]
     Indication: ANTIRETROVIRAL THERAPY
     Route: 064
  2. TRUVADA [Suspect]
     Indication: ANTIRETROVIRAL THERAPY
     Route: 064

REACTIONS (6)
  - Spina bifida [None]
  - Anencephaly [None]
  - Meningomyelocele [None]
  - Arnold-Chiari malformation [None]
  - Hydrocephalus [None]
  - Maternal drugs affecting foetus [None]
